FAERS Safety Report 9601824 (Version 3)
Quarter: 2013Q4

REPORT INFORMATION
  Report Type: Spontaneous
  Country: IT (occurrence: None)
  Receive Date: 20131002
  Receipt Date: 20131031
  Transmission Date: 20140711
  Serious: Yes (Hospitalization, Other)
  Sender: FDA-Public Use
  Company Number: AUR-APL-2013-08144

PATIENT
  Age: 76 Year
  Sex: Female

DRUGS (3)
  1. BISOPROLOL [Suspect]
     Indication: CARDIAC FAILURE
     Dosage: (1.25 MG, 1 D) , ORAL
     Route: 048
     Dates: start: 20130601, end: 20130717
  2. EUTIROX (LEVOTHYROXINE SODIUM) [Concomitant]
  3. TAREG (VALSARTAN) [Concomitant]

REACTIONS (7)
  - Bradycardia [None]
  - Syncope [None]
  - Ventricular extrasystoles [None]
  - Extrasystoles [None]
  - Headache [None]
  - Blood pressure systolic increased [None]
  - Anaemia [None]
